FAERS Safety Report 14620627 (Version 1)
Quarter: 2018Q1

REPORT INFORMATION
  Report Type: Spontaneous
  Country: US (occurrence: US)
  Receive Date: 20180309
  Receipt Date: 20180309
  Transmission Date: 20180509
  Serious: No
  Sender: FDA-Public Use
  Company Number: US-JUBILANT CADISTA PHARMACEUTICALS-2017JUB00356

PATIENT
  Sex: Female
  Weight: 131.52 kg

DRUGS (5)
  1. HYDROCHLOROTHIAZIDE. [Suspect]
     Active Substance: HYDROCHLOROTHIAZIDE
     Indication: OEDEMA
     Dosage: 25 MG, 1X/DAY
     Route: 048
     Dates: start: 201602, end: 2017
  2. HYDROCHLOROTHIAZIDE. [Suspect]
     Active Substance: HYDROCHLOROTHIAZIDE
     Dosage: 25 MG, 1X/DAY
     Route: 048
     Dates: start: 2017, end: 20170817
  3. PANTOPRAZOLE (AUROBINDO) [Suspect]
     Active Substance: PANTOPRAZOLE SODIUM
  4. HYDROCHLOROTHIAZIDE. [Suspect]
     Active Substance: HYDROCHLOROTHIAZIDE
     Indication: OEDEMA
     Dosage: 12.5 MG, 1X/DAY
     Route: 048
     Dates: start: 20170818, end: 201710
  5. LOSARTAN (AEROBE) [Suspect]
     Active Substance: LOSARTAN

REACTIONS (6)
  - Abdominal pain [Unknown]
  - Oedema peripheral [Not Recovered/Not Resolved]
  - Erythema [Unknown]
  - Dry mouth [Not Recovered/Not Resolved]
  - Dehydration [Unknown]
  - Allergic reaction to excipient [Unknown]

NARRATIVE: CASE EVENT DATE: 2017
